FAERS Safety Report 21839990 (Version 1)
Quarter: 2023Q1

REPORT INFORMATION
  Report Type: Report from Study
  Country: US (occurrence: US)
  Receive Date: 20230110
  Receipt Date: 20230110
  Transmission Date: 20230418
  Serious: No
  Sender: FDA-Public Use
  Company Number: US-ABBVIE-4262845

PATIENT
  Sex: Male

DRUGS (1)
  1. CREON [Suspect]
     Active Substance: PANCRELIPASE AMYLASE\PANCRELIPASE LIPASE\PANCRELIPASE PROTEASE
     Indication: Product used for unknown indication
     Dosage: DOSAGE: 36000 UNITS TAKE TWO CAPSULES BY MOUTH WITH MEALS AND TAKE 1 CAPSULE BY MOUTH WITH SNACKS
     Route: 048

REACTIONS (1)
  - Pancreatic disorder [Unknown]
